FAERS Safety Report 23208403 (Version 1)
Quarter: 2023Q4

REPORT INFORMATION
  Report Type: Spontaneous
  Country: IN (occurrence: IN)
  Receive Date: 20231121
  Receipt Date: 20231121
  Transmission Date: 20240109
  Serious: Yes (Hospitalization, Other)
  Sender: FDA-Public Use
  Company Number: IN-IPCA LABORATORIES LIMITED-IPC-2023-IN-002013

PATIENT

DRUGS (2)
  1. WARFARIN [Suspect]
     Active Substance: WARFARIN
     Indication: Intracardiac thrombus
     Dosage: 5 MILLIGRAM (FOR 3.5 MONTHS)
     Route: 065
  2. WARFARIN [Suspect]
     Active Substance: WARFARIN
     Dosage: 2 MILLIGRAM
     Route: 065

REACTIONS (5)
  - Haemoptysis [Recovered/Resolved]
  - Haematuria [Recovered/Resolved]
  - Toxicity to various agents [Recovered/Resolved]
  - Faeces discoloured [Recovered/Resolved]
  - International normalised ratio increased [Recovered/Resolved]
